FAERS Safety Report 4673487-7 (Version None)
Quarter: 2005Q2

REPORT INFORMATION
  Report Type: 
  Country: None (occurrence: None)
  Receive Date: 20050525
  Receipt Date: 20050516
  Transmission Date: 20051028
  Serious: Yes (Hospitalization)
  Sender: FDA-Public Use
  Company Number: A0558680A

PATIENT
  Age: 75 Year
  Sex: Female
  Weight: 79 kg

DRUGS (7)
  1. TUMS ULTRA TABLETS, ASSORTED FRUIT [Suspect]
     Route: 048
     Dates: start: 20040101
  2. SYNTHROID [Concomitant]
     Indication: HYPOTHYROIDISM
     Route: 048
  3. TENORMIN [Concomitant]
     Indication: HYPERTENSION
     Route: 048
  4. DIAZIDE [Concomitant]
     Indication: HYPERTENSION
     Route: 048
  5. COZAAR [Concomitant]
     Indication: HYPERTENSION
     Route: 048
  6. OS-CAL 500+D TABLETS [Concomitant]
     Route: 048
     Dates: start: 19930101
  7. PREVACID [Concomitant]
     Route: 048

REACTIONS (11)
  - BLOOD CREATINE PHOSPHOKINASE INCREASED [None]
  - BLOOD TEST ABNORMAL [None]
  - BLOOD UREA INCREASED [None]
  - CHEST PAIN [None]
  - DYSSTASIA [None]
  - HYPOTHYROIDISM [None]
  - PIGMENTED NAEVUS [None]
  - RESPIRATORY DISTRESS [None]
  - TENSION HEADACHE [None]
  - WEIGHT INCREASED [None]
  - WHITE BLOOD CELL COUNT INCREASED [None]
